FAERS Safety Report 5036077-2 (Version None)
Quarter: 2006Q2

REPORT INFORMATION
  Report Type: 
  Country: None (occurrence: None)
  Receive Date: 20060627
  Receipt Date: 20060623
  Transmission Date: 20061013
  Serious: Yes (Death, Hospitalization)
  Sender: FDA-Public Use
  Company Number: JP-BOEHRINGER INGELHEIM PHARMACEUTICALS, INC.-2006-BP-07244NB

PATIENT
  Age: 75 Year
  Sex: Male

DRUGS (1)
  1. MEXITIL [Suspect]
     Indication: ARRHYTHMIA
     Route: 048

REACTIONS (10)
  - CYTOMEGALOVIRUS ENTEROCOLITIS [None]
  - CYTOMEGALOVIRUS INFECTION [None]
  - DRUG HYPERSENSITIVITY [None]
  - HEPATIC FUNCTION ABNORMAL [None]
  - HUMAN HERPESVIRUS 6 INFECTION [None]
  - HYPERSENSITIVITY [None]
  - LYMPHADENOPATHY [None]
  - PNEUMONIA [None]
  - RESPIRATORY FAILURE [None]
  - SHOCK [None]
